FAERS Safety Report 4839230-3 (Version None)
Quarter: 2005Q4

REPORT INFORMATION
  Report Type: 
  Country: None (occurrence: None)
  Receive Date: 20051129
  Receipt Date: 20040809
  Transmission Date: 20060501
  Serious: Yes (Other)
  Sender: FDA-Public Use
  Company Number: US-GLAXOSMITHKLINE-A0521582A

PATIENT
  Age: 30 Year
  Sex: Female
  Weight: 75.9 kg

DRUGS (1)
  1. WELLBUTRIN SR [Suspect]
     Indication: DEPRESSION
     Route: 048
     Dates: start: 20040701

REACTIONS (3)
  - HALLUCINATION [None]
  - HEART RATE INCREASED [None]
  - TREMOR [None]
